FAERS Safety Report 26117255 (Version 1)
Quarter: 2025Q4

REPORT INFORMATION
  Report Type: Spontaneous
  Country: US (occurrence: None)
  Receive Date: 20251202
  Receipt Date: 20251202
  Transmission Date: 20260118
  Serious: Yes (Other)
  Sender: FDA-CTU
  Company Number: None

PATIENT
  Age: 49 Year
  Sex: Female
  Weight: 74.3 kg

DRUGS (3)
  1. RIFABUTIN [Suspect]
     Active Substance: RIFABUTIN
     Indication: Drug level
     Dosage: 300 MG DAILY ORAL ?
     Route: 048
     Dates: start: 20251022, end: 20251103
  2. GSK4524184 100 mg tablet [Concomitant]
  3. Acetaminophen 500 mg PO q 6 hours prn [Concomitant]

REACTIONS (2)
  - Chromaturia [None]
  - Lymphopenia [None]

NARRATIVE: CASE EVENT DATE: 20251105
